FAERS Safety Report 10197694 (Version 2)
Quarter: 2014Q2

REPORT INFORMATION
  Report Type: Spontaneous
  Country: US (occurrence: US)
  Receive Date: 20140527
  Receipt Date: 20140527
  Transmission Date: 20141212
  Serious: No
  Sender: FDA-Public Use
  Company Number: US-BRISTOL-MYERS SQUIBB COMPANY-19038744

PATIENT
  Age: 38 Year
  Sex: Female
  Weight: 154.19 kg

DRUGS (7)
  1. PRAVASTATIN SODIUM [Suspect]
     Indication: HYPERLIPIDAEMIA
     Route: 048
     Dates: start: 201008, end: 201203
  2. PRAVASTATIN SODIUM [Suspect]
     Indication: BLOOD CHOLESTEROL
     Route: 048
     Dates: start: 201008, end: 201203
  3. AMLODIPINE [Concomitant]
     Dates: start: 201002
  4. POTASSIUM [Concomitant]
  5. FAMOTIDINE [Concomitant]
     Dates: start: 201002, end: 201202
  6. NAPROXEN [Concomitant]
     Dates: start: 201010
  7. NIASPAN [Concomitant]
     Dates: start: 201010

REACTIONS (5)
  - Myositis [Unknown]
  - Arthralgia [Not Recovered/Not Resolved]
  - Back pain [Not Recovered/Not Resolved]
  - Headache [Unknown]
  - Fall [Unknown]
